FAERS Safety Report 8605532-8 (Version None)
Quarter: 2012Q3

REPORT INFORMATION
  Report Type: 
  Country: None (occurrence: None)
  Receive Date: 20120820
  Receipt Date: 20120809
  Transmission Date: 20120928
  Serious: Yes (Hospitalization, Other)
  Sender: FDA-Public Use
  Company Number: US-ASTRAZENECA-2010SE51491

PATIENT
  Age: 50 Year
  Sex: Female

DRUGS (4)
  1. NEXIUM [Suspect]
     Route: 048
  2. STRESS MEDICATION [Concomitant]
  3. BLOOD PRESSURE MEDICATION [Concomitant]
  4. ANXIETY MEDICATION [Concomitant]

REACTIONS (13)
  - BREAST CANCER [None]
  - DIABETES MELLITUS [None]
  - GASTROOESOPHAGEAL REFLUX DISEASE [None]
  - PULMONARY HYPERTENSION [None]
  - RHEUMATOID ARTHRITIS [None]
  - DRUG DOSE OMISSION [None]
  - CARDIAC FAILURE [None]
  - UTERINE CANCER [None]
  - SLEEP APNOEA SYNDROME [None]
  - WEIGHT INCREASED [None]
  - ARTHRITIS [None]
  - CEREBROVASCULAR ACCIDENT [None]
  - MALAISE [None]
